FAERS Safety Report 15463052 (Version 1)
Quarter: 2018Q4

REPORT INFORMATION
  Report Type: Spontaneous
  Country: US (occurrence: US)
  Receive Date: 20181004
  Receipt Date: 20181004
  Transmission Date: 20190204
  Serious: No
  Sender: FDA-Public Use
  Company Number: US-TEVA-2018-US-960454

PATIENT
  Sex: Female

DRUGS (8)
  1. DONNATAL [Concomitant]
     Active Substance: ATROPINE SULFATE\HYOSCYAMINE SULFATE\PHENOBARBITAL\SCOPOLAMINE HYDROBROMIDE
  2. METHYLPRED [Concomitant]
     Active Substance: METHYLPREDNISOLONE
  3. PREVACID [Concomitant]
     Active Substance: LANSOPRAZOLE
  4. AMPYRA [Concomitant]
     Active Substance: DALFAMPRIDINE
  5. COPAXONE [Suspect]
     Active Substance: GLATIRAMER ACETATE
     Indication: MULTIPLE SCLEROSIS
     Route: 058
     Dates: start: 20130606
  6. PROLIA [Concomitant]
     Active Substance: DENOSUMAB
  7. PREDNISONE. [Concomitant]
     Active Substance: PREDNISONE
  8. BONIVA [Concomitant]
     Active Substance: IBANDRONATE SODIUM

REACTIONS (1)
  - Back pain [Not Recovered/Not Resolved]
